FAERS Safety Report 15170758 (Version 12)
Quarter: 2020Q4

REPORT INFORMATION
  Report Type: Spontaneous
  Country: AT (occurrence: AT)
  Receive Date: 20180720
  Receipt Date: 20201005
  Transmission Date: 20210113
  Serious: Yes (Hospitalization, Other)
  Sender: FDA-Public Use
  Company Number: AT-AMGEN-AUTNI2018096764

PATIENT
  Age: 67 Year
  Sex: Female
  Weight: 89 kg

DRUGS (41)
  1. TRASTUZUMAB. [Suspect]
     Active Substance: TRASTUZUMAB
     Indication: HER2 POSITIVE BREAST CANCER
     Dosage: 712 MG, QWK
     Route: 042
     Dates: start: 20170324
  2. TRASTUZUMAB. [Suspect]
     Active Substance: TRASTUZUMAB
     Dosage: 712 MG, QWK
     Route: 042
     Dates: start: 20180723, end: 2018
  3. PERTUZUMAB. [Suspect]
     Active Substance: PERTUZUMAB
     Dosage: 840 MG, Q3WK
     Route: 042
     Dates: start: 20171213
  4. KYTRIL [Concomitant]
     Active Substance: GRANISETRON HYDROCHLORIDE
     Dosage: UNK
     Route: 065
     Dates: start: 20180608
  5. MEXALEN [Concomitant]
     Active Substance: ACETAMINOPHEN
     Dosage: UNK
     Route: 065
     Dates: start: 20180715
  6. LOVENOX [Concomitant]
     Active Substance: ENOXAPARIN SODIUM
     Dosage: UNK
     Route: 065
  7. XGEVA [Suspect]
     Active Substance: DENOSUMAB
     Indication: PRODUCT USED FOR UNKNOWN INDICATION
     Dosage: UNK
     Route: 065
     Dates: start: 20181017
  8. ARIMIDEX [Suspect]
     Active Substance: ANASTROZOLE
     Indication: BREAST CANCER METASTATIC
     Dosage: 1 MG, QD
     Route: 048
     Dates: start: 20170324
  9. PERTUZUMAB. [Suspect]
     Active Substance: PERTUZUMAB
     Dosage: 840 MG, Q3WK
     Route: 042
     Dates: start: 20180723, end: 2018
  10. ULSAL [Concomitant]
     Active Substance: RANITIDINE HYDROCHLORIDE
     Dosage: UNK
     Route: 065
     Dates: start: 20170414
  11. MOLAXOLE [Concomitant]
     Active Substance: POLYETHYLENE GLYCOL 3350\POTASSIUM CHLORIDE\SODIUM BICARBONATE\SODIUM CHLORIDE
     Dosage: UNK
     Route: 065
     Dates: start: 20180715
  12. TRASTUZUMAB. [Suspect]
     Active Substance: TRASTUZUMAB
     Dosage: 712 MG, QWK
     Route: 042
     Dates: start: 20170714
  13. TRASTUZUMAB. [Suspect]
     Active Substance: TRASTUZUMAB
     Dosage: 712 MG, QWK
     Route: 042
     Dates: start: 20180608, end: 2018
  14. PERTUZUMAB. [Suspect]
     Active Substance: PERTUZUMAB
     Indication: BREAST CANCER METASTATIC
     Dosage: 840 MG, Q3WK
     Route: 042
     Dates: start: 20170324
  15. PERTUZUMAB. [Suspect]
     Active Substance: PERTUZUMAB
     Indication: HER2 POSITIVE BREAST CANCER
     Dosage: 840 MG, Q3WK
     Route: 042
     Dates: start: 20170714
  16. DEXABENE [Concomitant]
     Dosage: UNK
     Route: 065
     Dates: start: 20170414
  17. MEROPENEM. [Concomitant]
     Active Substance: MEROPENEM
     Indication: DYSPNOEA EXERTIONAL
     Dosage: UNK
     Route: 065
     Dates: start: 20180705, end: 20180712
  18. CONCOR [Concomitant]
     Active Substance: BISOPROLOL FUMARATE
     Dosage: UNK
     Route: 065
     Dates: start: 20171213, end: 20180715
  19. TORASEMID [Concomitant]
     Active Substance: TORSEMIDE
     Indication: HYPERTENSION
     Dosage: UNK
     Route: 065
  20. TORASEMID [Concomitant]
     Active Substance: TORSEMIDE
     Dosage: UNK
     Route: 065
  21. CORTISON [Concomitant]
     Active Substance: CORTISONE ACETATE
     Dosage: UNK
     Route: 065
     Dates: start: 20180608
  22. VITAMINS WITH MINERALS [Concomitant]
     Active Substance: MINERALS\VITAMINS
     Dosage: UNK
     Route: 065
     Dates: start: 20170505
  23. FOSTER [Concomitant]
     Active Substance: BECLOMETHASONE\FORMOTEROL
     Indication: DYSPNOEA
     Dosage: UNK
     Dates: start: 20171120
  24. TAXOTERE [Suspect]
     Active Substance: DOCETAXEL
     Indication: HER2 POSITIVE BREAST CANCER
  25. FENISTIL [Concomitant]
     Active Substance: DIMETHINDENE
     Dosage: UNK
     Route: 065
     Dates: start: 20170414
  26. AVELOX [Concomitant]
     Active Substance: MOXIFLOXACIN HYDROCHLORIDE
     Indication: DYSPNOEA EXERTIONAL
     Dosage: UNK
     Route: 065
     Dates: start: 20180712, end: 20180722
  27. FORTECORTIN [Concomitant]
     Active Substance: DEXAMETHASONE
     Dosage: UNK
     Route: 065
     Dates: start: 20180723
  28. ACETYLSALICYLIC ACID [Concomitant]
     Active Substance: ASPIRIN
     Indication: HYPERTENSION
     Dosage: UNK
     Dates: start: 20171120
  29. ARIMIDEX [Suspect]
     Active Substance: ANASTROZOLE
     Indication: HER2 POSITIVE BREAST CANCER
  30. PANTOPRAZOL [Concomitant]
     Active Substance: PANTOPRAZOLE SODIUM
     Dosage: UNK
     Route: 065
  31. TRITAZIDE [Concomitant]
     Active Substance: HYDROCHLOROTHIAZIDE\RAMIPRIL
     Dosage: UNK
     Route: 065
  32. TAXOTERE [Suspect]
     Active Substance: DOCETAXEL
     Indication: BREAST CANCER METASTATIC
     Dosage: 137 MG, Q3WK
     Route: 042
     Dates: start: 20180608
  33. VIBRAMYCIN [Concomitant]
     Active Substance: DOXYCYCLINE
     Indication: SINUSITIS
     Dosage: UNK
     Route: 065
     Dates: start: 20180417, end: 20180615
  34. CONCOR [Concomitant]
     Active Substance: BISOPROLOL FUMARATE
     Indication: HYPERTENSION
     Dosage: UNK
     Route: 065
     Dates: start: 20171120, end: 20171213
  35. NOVALGIN [Concomitant]
     Indication: DYSPNOEA EXERTIONAL
     Dosage: UNK
     Route: 065
     Dates: start: 20180715
  36. TRASTUZUMAB. [Suspect]
     Active Substance: TRASTUZUMAB
     Indication: BREAST CANCER METASTATIC
     Dosage: 712 MG, Q3WK
     Route: 042
     Dates: start: 20170324
  37. FASLODEX [Suspect]
     Active Substance: FULVESTRANT
     Indication: BREAST CANCER
     Dosage: 500 MILLIGRAM, Q2WK
     Route: 030
     Dates: start: 20181128
  38. ANDOL [Concomitant]
     Active Substance: ASPIRIN
     Indication: HYPERTENSION
     Dosage: UNK
     Route: 065
  39. CONCOR [Concomitant]
     Active Substance: BISOPROLOL FUMARATE
     Dosage: UNK
     Route: 065
  40. URBASON [METHYLPREDNISOLONE] [Concomitant]
     Active Substance: METHYLPREDNISOLONE
     Dosage: UNK
     Dates: start: 20191210
  41. FOSTER [Concomitant]
     Active Substance: BECLOMETHASONE\FORMOTEROL
     Indication: DYSPNOEA
     Dosage: UNK
     Dates: start: 20171120

REACTIONS (14)
  - Pain [Recovered/Resolved]
  - Ill-defined disorder [Recovered/Resolved]
  - Ejection fraction decreased [Not Recovered/Not Resolved]
  - Hypertension [Recovered/Resolved]
  - Renal pain [Recovered/Resolved]
  - Off label use [Unknown]
  - Flank pain [Recovered/Resolved]
  - Sinusitis [Recovered/Resolved]
  - Dyspnoea [Recovered/Resolved]
  - Dyspnoea exertional [Recovered/Resolved]
  - Paraesthesia [Recovered/Resolved]
  - Ejection fraction decreased [Not Recovered/Not Resolved]
  - Pyrexia [Not Recovered/Not Resolved]
  - Diarrhoea [Recovered/Resolved]

NARRATIVE: CASE EVENT DATE: 20171030
